FAERS Safety Report 8816849 (Version 1)
Quarter: 2012Q4

REPORT INFORMATION
  Report Type: Spontaneous
  Country: US (occurrence: None)
  Receive Date: 20121002
  Receipt Date: 20121002
  Transmission Date: 20130627
  Serious: No
  Sender: FDA-Public Use
  Company Number: None

PATIENT
  Sex: Male
  Weight: 71.22 kg

DRUGS (1)
  1. ATORVASTATIN 20MG [Suspect]
     Indication: HYPERLIPIDEMIA
     Route: 048
     Dates: start: 20120202, end: 20120606

REACTIONS (3)
  - Myalgia [None]
  - Arthralgia [None]
  - Product substitution issue [None]
